FAERS Safety Report 6996992-7 (Version None)
Quarter: 2010Q3

REPORT INFORMATION
  Report Type: 
  Country: None (occurrence: None)
  Receive Date: 20100918
  Receipt Date: 20090914
  Transmission Date: 20110219
  Serious: No
  Sender: FDA-Public Use
  Company Number: US-WYE-H10747809

PATIENT
  Age: 59 Year
  Sex: Female
  Weight: 87.62 kg

DRUGS (5)
  1. PRISTIQ [Suspect]
     Indication: DEPRESSION
     Route: 048
     Dates: start: 20090201, end: 20090824
  2. LEVOTHYROXINE [Concomitant]
  3. WELLBUTRIN [Concomitant]
  4. FOLIC ACID [Concomitant]
  5. ACETYLSALICYLIC ACID [Concomitant]

REACTIONS (6)
  - BLOOD PRESSURE INCREASED [None]
  - DIZZINESS [None]
  - DRUG WITHDRAWAL SYNDROME [None]
  - FEELING HOT [None]
  - HYPERHIDROSIS [None]
  - INSOMNIA [None]
